FAERS Safety Report 7288925-3 (Version None)
Quarter: 2011Q1

REPORT INFORMATION
  Report Type: 
  Country: None (occurrence: None)
  Receive Date: 20110211
  Receipt Date: 20110203
  Transmission Date: 20110831
  Serious: Yes (Other)
  Sender: FDA-Public Use
  Company Number: PHHY2011ES08130

PATIENT
  Age: 70 Year
  Sex: Male

DRUGS (3)
  1. CLAVULANATE POTASSIUM [Concomitant]
  2. ZOMETA [Suspect]
     Indication: METASTASES TO BONE
  3. ZOMETA [Suspect]
     Indication: PROSTATE CANCER
     Dosage: 4 MG, UNK
     Dates: start: 20080906, end: 20101020

REACTIONS (6)
  - GINGIVAL OEDEMA [None]
  - LOOSE TOOTH [None]
  - OSTEONECROSIS OF JAW [None]
  - SOFT TISSUE INFECTION [None]
  - OSTEOMYELITIS [None]
  - DENTAL FISTULA [None]
